FAERS Safety Report 6851032-5 (Version None)
Quarter: 2010Q3

REPORT INFORMATION
  Report Type: 
  Country: None (occurrence: None)
  Receive Date: 20100716
  Receipt Date: 20071024
  Transmission Date: 20110219
  Serious: No
  Sender: FDA-Public Use
  Company Number: US-PFIZER INC-2007091368

PATIENT
  Sex: Female
  Weight: 40.909 kg

DRUGS (6)
  1. CHANTIX [Suspect]
     Indication: SMOKING CESSATION THERAPY
     Dates: start: 20070913
  2. EQUATE [Suspect]
     Indication: SMOKING CESSATION THERAPY
     Dates: start: 20070901
  3. LISINOPRIL [Concomitant]
  4. SIMVASTATIN [Concomitant]
  5. CALCIUM [Concomitant]
  6. MULTI-VITAMINS [Concomitant]

REACTIONS (3)
  - ABDOMINAL PAIN UPPER [None]
  - NAUSEA [None]
  - PRURITUS [None]
